FAERS Safety Report 5086920-6 (Version None)
Quarter: 2006Q3

REPORT INFORMATION
  Report Type: 
  Country: None (occurrence: None)
  Receive Date: 20060818
  Receipt Date: 20060808
  Transmission Date: 20061208
  Serious: Yes (Other)
  Sender: FDA-Public Use
  Company Number: 2006078318

PATIENT
  Sex: Female

DRUGS (1)
  1. GEODON [Suspect]
     Indication: DRUG USE FOR UNKNOWN INDICATION

REACTIONS (5)
  - ANXIETY [None]
  - COGNITIVE DISORDER [None]
  - DELAYED RECOVERY FROM ANAESTHESIA [None]
  - PARKINSON'S DISEASE [None]
  - SPINAL OPERATION [None]
